FAERS Safety Report 13605733 (Version 2)
Quarter: 2017Q2

REPORT INFORMATION
  Report Type: Report from Study
  Country: None (occurrence: CO)
  Receive Date: 20170602
  Receipt Date: 20170614
  Transmission Date: 20170830
  Serious: Yes (Other)
  Sender: FDA-Public Use
  Company Number: CO-ABBVIE-17K-036-1994535-00

PATIENT
  Age: 67 Year
  Sex: Male
  Weight: 58 kg

DRUGS (1)
  1. HUMIRA [Suspect]
     Active Substance: ADALIMUMAB
     Indication: ANKYLOSING SPONDYLITIS
     Route: 058
     Dates: start: 20120416, end: 20170528

REACTIONS (2)
  - Cataract [Not Recovered/Not Resolved]
  - Pancreatolithiasis [Not Recovered/Not Resolved]

NARRATIVE: CASE EVENT DATE: 20170518
